APPROVED DRUG PRODUCT: VALACYCLOVIR HYDROCHLORIDE
Active Ingredient: VALACYCLOVIR HYDROCHLORIDE
Strength: EQ 500MG BASE
Dosage Form/Route: TABLET;ORAL
Application: A076588 | Product #001 | TE Code: AB
Applicant: SUN PHARMACEUTICAL INDUSTRIES LTD
Approved: Jan 31, 2007 | RLD: No | RS: No | Type: RX